FAERS Safety Report 13077383 (Version 3)
Quarter: 2017Q1

REPORT INFORMATION
  Report Type: Spontaneous
  Country: JP (occurrence: JP)
  Receive Date: 20161230
  Receipt Date: 20170302
  Transmission Date: 20170428
  Serious: Yes (Death)
  Sender: FDA-Public Use
  Company Number: JP-DSJP-DSJ-2016-143843

PATIENT

DRUGS (9)
  1. NEXIUM [Concomitant]
     Active Substance: ESOMEPRAZOLE MAGNESIUM
     Dosage: 20 MG, QD, AFTER DINNER
     Route: 065
     Dates: start: 20161019
  2. PLETAAL [Concomitant]
     Active Substance: CILOSTAZOL
     Dosage: 100 MG, BID, AFTER BREAKFAST AND DINNER
     Route: 065
     Dates: start: 20161019
  3. PROMAC D [Concomitant]
     Active Substance: POLAPREZINC
     Dosage: 75 MG, BID, AFTER BREAKFAST AND DINNER
     Route: 065
     Dates: start: 20161019
  4. OLMETEC TABLETS 20MG [Concomitant]
     Active Substance: OLMESARTAN MEDOXOMIL
     Dosage: 20 MG, QD, BEFORE SLEEP
     Route: 065
     Dates: start: 20161019
  5. LIXIANA TABLETS [Suspect]
     Active Substance: EDOXABAN TOSILATE MONOHYDRATE
     Indication: ATRIAL FIBRILLATION
     Dosage: 60 MG, QD
     Route: 048
     Dates: start: 20151009, end: 20161101
  6. MAINTATE [Concomitant]
     Active Substance: BISOPROLOL FUMARATE
     Dosage: 2.5 MG, QD, AFTER BREAKFAST
     Route: 065
     Dates: start: 20161019
  7. SEIBULE [Concomitant]
     Active Substance: MIGLITOL
     Dosage: 50 MG, TID, BEFORE EACH MEAL
     Route: 065
     Dates: start: 20161019
  8. TENELIA TABLETS 20MG [Concomitant]
     Active Substance: TENELIGLIPTIN
     Dosage: 20 MG, QD, AFTER BREAKFAST
     Route: 065
     Dates: start: 20161019
  9. K-SUPPLY [Concomitant]
     Active Substance: POTASSIUM CHLORIDE
     Dosage: 600 MG, QD, AFTER BREAKFAST
     Route: 065
     Dates: start: 20161019

REACTIONS (1)
  - Embolic cerebral infarction [Fatal]

NARRATIVE: CASE EVENT DATE: 20161031
